APPROVED DRUG PRODUCT: VIBRAMYCIN
Active Ingredient: DOXYCYCLINE HYCLATE
Strength: EQ 50MG BASE **Federal Register determination that product was not discontinued or withdrawn for safety or effectiveness reasons**
Dosage Form/Route: CAPSULE;ORAL
Application: N050007 | Product #001
Applicant: PFIZER LABORATORIES DIV PFIZER INC
Approved: Approved Prior to Jan 1, 1982 | RLD: Yes | RS: No | Type: DISCN